FAERS Safety Report 12356888 (Version 2)
Quarter: 2016Q3

REPORT INFORMATION
  Report Type: Spontaneous
  Country: US (occurrence: US)
  Receive Date: 20160511
  Receipt Date: 20160905
  Transmission Date: 20161109
  Serious: No
  Sender: FDA-Public Use
  Company Number: US-PFIZER INC-2016242898

PATIENT
  Age: 62 Year
  Sex: Female
  Weight: 54.42 kg

DRUGS (2)
  1. SUTENT [Suspect]
     Active Substance: SUNITINIB MALATE
     Dosage: 25 MG, CYCLIC (DAY 1-28)
     Route: 048
     Dates: start: 20160330
  2. SUTENT [Suspect]
     Active Substance: SUNITINIB MALATE
     Indication: PANCREATIC CARCINOMA
     Dosage: 25 MG, DAILY
     Route: 048
     Dates: start: 20141218

REACTIONS (9)
  - Skin ulcer [Unknown]
  - Nausea [Unknown]
  - Fatigue [Unknown]
  - Abdominal discomfort [Unknown]
  - Vomiting [Unknown]
  - Nasal dryness [Unknown]
  - Pain in extremity [Unknown]
  - Oral pain [Unknown]
  - Peripheral swelling [Unknown]
